FAERS Safety Report 5482841-5 (Version None)
Quarter: 2007Q4

REPORT INFORMATION
  Report Type: 
  Country: None (occurrence: None)
  Receive Date: 20071011
  Receipt Date: 20071001
  Transmission Date: 20080405
  Serious: Yes (Other)
  Sender: FDA-Public Use
  Company Number: GR-PFIZER INC-2007083273

PATIENT
  Sex: Male

DRUGS (1)
  1. VIBRAMYCIN [Suspect]

REACTIONS (2)
  - DYSPNOEA [None]
  - TACHYCARDIA [None]
